FAERS Safety Report 6497505-9 (Version None)
Quarter: 2009Q4

REPORT INFORMATION
  Report Type: 
  Country: None (occurrence: None)
  Receive Date: 20091211
  Receipt Date: 20091125
  Transmission Date: 20100525
  Serious: Yes (Other)
  Sender: FDA-Public Use
  Company Number: 220079J09GBR

PATIENT
  Age: 18 Year
  Sex: Male

DRUGS (1)
  1. SAIZEN [Suspect]
     Indication: GROWTH RETARDATION

REACTIONS (3)
  - DEVICE ELECTRICAL FINDING [None]
  - MEDICAL DEVICE COMPLICATION [None]
  - NEOPLASM [None]
